FAERS Safety Report 21178130 (Version 1)
Quarter: 2022Q3

REPORT INFORMATION
  Report Type: Report from Study
  Country: US (occurrence: US)
  Receive Date: 20220805
  Receipt Date: 20220805
  Transmission Date: 20221027
  Serious: No
  Sender: FDA-Public Use
  Company Number: US-BIOVITRUM-2022US09185

PATIENT
  Age: 41 Year
  Sex: Female

DRUGS (1)
  1. KINERET [Suspect]
     Active Substance: ANAKINRA
     Indication: Osteoarthritis
     Dates: start: 202204

REACTIONS (4)
  - Injection site inflammation [Unknown]
  - Injection site pain [Unknown]
  - Injection site irritation [Unknown]
  - Off label use [Unknown]

NARRATIVE: CASE EVENT DATE: 20220401
